FAERS Safety Report 23748135 (Version 2)
Quarter: 2024Q2

REPORT INFORMATION
  Report Type: Spontaneous
  Country: US (occurrence: US)
  Receive Date: 20240416
  Receipt Date: 20240620
  Transmission Date: 20240715
  Serious: No
  Sender: FDA-Public Use
  Company Number: US-PFIZER INC-PV202200115317

PATIENT
  Age: 65 Year
  Sex: Female
  Weight: 73.48 kg

DRUGS (2)
  1. IBRANCE [Suspect]
     Active Substance: PALBOCICLIB
     Indication: Breast cancer stage IV
     Dosage: 75 MG, CYCLIC (75 MG, ONCE A DAY FOR ONE WEEK ON AND ONE WEEK OFF)
     Route: 048
  2. LYRICA [Concomitant]
     Active Substance: PREGABALIN
     Dosage: 50 MG, DAILY
     Route: 048

REACTIONS (3)
  - Drug ineffective [Unknown]
  - Nasopharyngitis [Unknown]
  - Off label use [Unknown]
